FAERS Safety Report 8021187-8 (Version None)
Quarter: 2012Q1

REPORT INFORMATION
  Report Type: 
  Country: None (occurrence: None)
  Receive Date: 20120104
  Receipt Date: 20111226
  Transmission Date: 20120608
  Serious: Yes (Hospitalization, Other)
  Sender: FDA-Public Use
  Company Number: GB-BRISTOL-MYERS SQUIBB COMPANY-15946528

PATIENT
  Age: 34 Year
  Sex: Female

DRUGS (6)
  1. ZIDOVUDINE [Interacting]
     Indication: HIV INFECTION
     Dates: start: 20050801
  2. TENOFOVIR [Interacting]
     Indication: ANTIRETROVIRAL THERAPY
  3. EMTRICITABINE [Interacting]
     Indication: ANTIRETROVIRAL THERAPY
  4. LAMIVUDINE [Interacting]
     Indication: HIV INFECTION
     Dates: start: 20050801
  5. EFAVIRENZ [Suspect]
     Indication: HIV INFECTION
     Dates: start: 20050801
  6. IMPLANON [Interacting]
     Indication: CONTRACEPTION
     Dosage: DOSAGE FORM IS IMPLANT
     Dates: start: 20051101

REACTIONS (6)
  - ECTOPIC PREGNANCY [None]
  - ABDOMINAL PAIN [None]
  - UNINTENDED PREGNANCY [None]
  - AMENORRHOEA [None]
  - PREGNANCY WITH IMPLANT CONTRACEPTIVE [None]
  - DRUG INTERACTION [None]
